FAERS Safety Report 7814773-9 (Version None)
Quarter: 2011Q4

REPORT INFORMATION
  Report Type: 
  Country: None (occurrence: None)
  Receive Date: 20111012
  Receipt Date: 20110919
  Transmission Date: 20120403
  Serious: Yes (Hospitalization, Other)
  Sender: FDA-Public Use
  Company Number: EU-2011-10150

PATIENT
  Age: 53 Year
  Sex: Female

DRUGS (5)
  1. SAMSCA [Suspect]
     Indication: INAPPROPRIATE ANTIDIURETIC HORMONE SECRETION
     Dosage: 30 MG MILLIGRAM(S), UNKNOWN, ORAL; ORAL
     Route: 048
     Dates: start: 20110818
  2. SAMSCA [Suspect]
     Indication: INAPPROPRIATE ANTIDIURETIC HORMONE SECRETION
     Dosage: 30 MG MILLIGRAM(S), UNKNOWN, ORAL; ORAL
     Route: 048
     Dates: start: 20110811, end: 20110814
  3. NACI (NACI), 10% [Concomitant]
  4. NACI (NACI) 0.9% [Concomitant]
  5. SAMSCA [Suspect]
     Indication: INAPPROPRIATE ANTIDIURETIC HORMONE SECRETION
     Dosage: 30 MG MILLIGRAM(S), QD, ORAL
     Route: 048
     Dates: start: 20110401

REACTIONS (15)
  - VERTIGO [None]
  - MOOD ALTERED [None]
  - QUADRIPARESIS [None]
  - DELIRIUM TREMENS [None]
  - NAUSEA [None]
  - DISTURBANCE IN ATTENTION [None]
  - CHILLS [None]
  - SOMNOLENCE [None]
  - DYSKINESIA [None]
  - LETHARGY [None]
  - STUPOR [None]
  - DYSPHAGIA [None]
  - DYSARTHRIA [None]
  - MUTISM [None]
  - VOMITING [None]
